FAERS Safety Report 4791696-3 (Version None)
Quarter: 2005Q4

REPORT INFORMATION
  Report Type: 
  Country: None (occurrence: None)
  Receive Date: 20051007
  Receipt Date: 20050614
  Transmission Date: 20060501
  Serious: Yes (Other)
  Sender: FDA-Public Use
  Company Number: GB-GLAXOSMITHKLINE-B0384365A

PATIENT
  Age: 35 Year
  Sex: Female

DRUGS (3)
  1. COMBIVIR [Suspect]
     Dosage: 1TAB TWICE PER DAY
     Route: 048
     Dates: start: 20050428
  2. KALETRA [Concomitant]
     Dosage: 3TAB TWICE PER DAY
     Route: 065
     Dates: start: 20050428, end: 20050503
  3. TRIZIVIR [Concomitant]

REACTIONS (5)
  - ABORTION SPONTANEOUS [None]
  - DRUG EXPOSURE DURING PREGNANCY [None]
  - INTRA-UTERINE DEATH [None]
  - PREMATURE SEPARATION OF PLACENTA [None]
  - STOMACH DISCOMFORT [None]
